FAERS Safety Report 11938207 (Version 3)
Quarter: 2016Q1

REPORT INFORMATION
  Report Type: Spontaneous
  Country: US (occurrence: US)
  Receive Date: 20160122
  Receipt Date: 20160303
  Transmission Date: 20160526
  Serious: No
  Sender: FDA-Public Use
  Company Number: US-ELI_LILLY_AND_COMPANY-US201601001253

PATIENT
  Sex: Female
  Weight: 88.89 kg

DRUGS (4)
  1. AMBRISENTAN [Suspect]
     Active Substance: AMBRISENTAN
     Indication: PRODUCT USED FOR UNKNOWN INDICATION
     Dosage: 10 MG, QD
     Dates: start: 20140909
  2. REMODULIN [Suspect]
     Active Substance: TREPROSTINIL
     Dosage: 10 DF, UNKNOWN
     Route: 058
  3. ADCIRCA [Suspect]
     Active Substance: TADALAFIL
     Indication: PRODUCT USED FOR UNKNOWN INDICATION
     Dosage: UNK UNK, UNKNOWN
     Route: 065
     Dates: start: 20151229
  4. REMODULIN [Suspect]
     Active Substance: TREPROSTINIL
     Indication: PULMONARY ARTERIAL HYPERTENSION
     Dosage: UNK, UNKNOWN
     Route: 058
     Dates: start: 20150903

REACTIONS (16)
  - Bruxism [Unknown]
  - Dyspnoea [Unknown]
  - Sleep disorder due to general medical condition, insomnia type [Unknown]
  - Sinus congestion [Unknown]
  - Hypoaesthesia oral [Unknown]
  - Gastrooesophageal reflux disease [Unknown]
  - Palpitations [Not Recovered/Not Resolved]
  - Gingival recession [Unknown]
  - Dehydration [Unknown]
  - Increased viscosity of upper respiratory secretion [Unknown]
  - Vomiting [Not Recovered/Not Resolved]
  - Salivary hypersecretion [Unknown]
  - Flushing [Not Recovered/Not Resolved]
  - Nausea [Not Recovered/Not Resolved]
  - Nasal dryness [Unknown]
  - Fluid overload [Unknown]
